FAERS Safety Report 18073042 (Version 1)
Quarter: 2020Q3

REPORT INFORMATION
  Report Type: Spontaneous
  Country: US (occurrence: US)
  Receive Date: 20200727
  Receipt Date: 20200727
  Transmission Date: 20201103
  Serious: No
  Sender: FDA-Public Use
  Company Number: None

PATIENT

DRUGS (1)
  1. ADVANCED PROTECTION SMART SANITARY SOLUTION HAND SANITIZER (ETHYL ALCOHOL) [Suspect]
     Active Substance: ALCOHOL

REACTIONS (3)
  - Dizziness [None]
  - Vision blurred [None]
  - Rash [None]
